FAERS Safety Report 18544845 (Version 1)
Quarter: 2020Q4

REPORT INFORMATION
  Report Type: Spontaneous
  Country: US (occurrence: US)
  Receive Date: 20201125
  Receipt Date: 20201125
  Transmission Date: 20210114
  Serious: No
  Sender: FDA-Public Use
  Company Number: US-GLAXOSMITHKLINE-US2020AMR232400

PATIENT
  Sex: Female

DRUGS (1)
  1. ZEJULA [Suspect]
     Active Substance: NIRAPARIB
     Indication: OVARIAN CANCER
     Dosage: 200 MG, QD
     Route: 048
     Dates: start: 20201014

REACTIONS (15)
  - Abdominal pain upper [Unknown]
  - Heart rate irregular [Unknown]
  - Nausea [Unknown]
  - Dyspnoea [Unknown]
  - Dry mouth [Unknown]
  - Fatigue [Unknown]
  - Arthralgia [Unknown]
  - Oropharyngeal pain [Unknown]
  - Adverse drug reaction [Unknown]
  - Therapy cessation [Unknown]
  - Haemoglobin decreased [Unknown]
  - Constipation [Unknown]
  - Illness [Unknown]
  - Stomatitis [Unknown]
  - Diarrhoea [Unknown]
